FAERS Safety Report 6752388-4 (Version None)
Quarter: 2010Q2

REPORT INFORMATION
  Report Type: 
  Country: None (occurrence: None)
  Receive Date: 20100602
  Receipt Date: 20100521
  Transmission Date: 20101027
  Serious: Yes (Hospitalization, Other)
  Sender: FDA-Public Use
  Company Number: DK-PFIZER INC-2010063884

PATIENT
  Age: 31 Year
  Sex: Male
  Weight: 112 kg

DRUGS (5)
  1. LYRICA [Suspect]
     Indication: DEPRESSION
     Dosage: UNK
     Route: 048
     Dates: start: 20091230, end: 20100105
  2. CIPRALEX [Suspect]
     Indication: DEPRESSION
     Dosage: 20 MG, 1X/DAY
     Dates: start: 20091221, end: 20100102
  3. OXYCONTIN [Suspect]
     Indication: PAIN
     Dosage: 10 MG, 2X/DAY
     Route: 048
     Dates: start: 20100101
  4. MANDOLGIN [Suspect]
     Indication: PAIN
     Dosage: 100 MG, 4X/DAY
     Route: 048
     Dates: start: 20090101, end: 20100126
  5. SEROQUEL [Suspect]
     Route: 048

REACTIONS (2)
  - GRAND MAL CONVULSION [None]
  - URINARY RETENTION [None]
